FAERS Safety Report 7277208-3 (Version None)
Quarter: 2011Q1

REPORT INFORMATION
  Report Type: 
  Country: None (occurrence: None)
  Receive Date: 20110202
  Receipt Date: 20110202
  Transmission Date: 20110831
  Serious: No
  Sender: FDA-Public Use
  Company Number: None

PATIENT
  Age: 53 Year
  Sex: Female
  Weight: 74.8435 kg

DRUGS (1)
  1. OXYMETAZOLINE HCL [Suspect]
     Indication: SINUSITIS
     Dosage: 1-2 SPRAYS EACH NOSTRIL TWICE A DAY, 3 DAY NASAL
     Route: 045
     Dates: start: 20110127, end: 20110127

REACTIONS (3)
  - OCULAR HYPERAEMIA [None]
  - LACRIMATION INCREASED [None]
  - EYE DISCHARGE [None]
